FAERS Safety Report 9265245 (Version 1)
Quarter: 2013Q2

REPORT INFORMATION
  Report Type: Spontaneous
  Country: SG (occurrence: SG)
  Receive Date: 20130501
  Receipt Date: 20130501
  Transmission Date: 20140414
  Serious: Yes (Other)
  Sender: FDA-Public Use
  Company Number: SG-BAYER-2013-054118

PATIENT
  Age: 47 Year
  Sex: Male

DRUGS (1)
  1. ULTRAVIST [Suspect]
     Route: 042

REACTIONS (1)
  - Erythema nodosum [Unknown]
